FAERS Safety Report 25018292 (Version 2)
Quarter: 2025Q1

REPORT INFORMATION
  Report Type: Spontaneous
  Country: LB (occurrence: LB)
  Receive Date: 20250227
  Receipt Date: 20250305
  Transmission Date: 20250408
  Serious: Yes (Other)
  Sender: PFIZER
  Company Number: LB-MLMSERVICE-20250217-PI415710-00059-1

PATIENT
  Age: 59 Year
  Sex: Male

DRUGS (5)
  1. INFLIXIMAB [Suspect]
     Active Substance: INFLIXIMAB
     Indication: Crohn^s disease
     Dates: start: 2014, end: 2020
  2. AZATHIOPRINE [Suspect]
     Active Substance: AZATHIOPRINE
     Indication: Crohn^s disease
     Dates: start: 2008, end: 2014
  3. VEDOLIZUMAB [Suspect]
     Active Substance: VEDOLIZUMAB
     Indication: Crohn^s disease
     Dates: start: 2020, end: 2023
  4. PREDNISONE [Concomitant]
     Active Substance: PREDNISONE
     Indication: Crohn^s disease
     Dates: start: 2023, end: 202402
  5. MESALAMINE [Concomitant]
     Active Substance: MESALAMINE
     Indication: Crohn^s disease
     Dates: start: 2008

REACTIONS (2)
  - B-cell type acute leukaemia [Recovering/Resolving]
  - Philadelphia positive acute lymphocytic leukaemia [Recovering/Resolving]
